FAERS Safety Report 12114431 (Version 1)
Quarter: 2016Q1

REPORT INFORMATION
  Report Type: Spontaneous
  Country: US (occurrence: None)
  Receive Date: 20160224
  Receipt Date: 20160224
  Transmission Date: 20160526
  Serious: No
  Sender: FDA-Public Use
  Company Number: None

PATIENT
  Age: 38 Year
  Sex: Male

DRUGS (1)
  1. OLD SPICE PLAYMAKER HIGH ENDURANCE [Suspect]
     Active Substance: ALUMINUM ZIRCONIUM TRICHLOROHYDREX GLY
     Dosage: 1 APPLICATION 1/DAY (CONTINUE) TOPICAL
     Route: 061

REACTIONS (13)
  - Wound [None]
  - Skin injury [None]
  - Purulent discharge [None]
  - Scar [None]
  - Chemical injury [None]
  - Condition aggravated [None]
  - Axillary pain [None]
  - Skin burning sensation [None]
  - Sensory loss [None]
  - Bipolar disorder [None]
  - Movement disorder [None]
  - Skin irritation [None]
  - Major depression [None]
